FAERS Safety Report 5068229-X (Version None)
Quarter: 2006Q3

REPORT INFORMATION
  Report Type: 
  Country: None (occurrence: None)
  Receive Date: 20060802
  Receipt Date: 20050613
  Transmission Date: 20061208
  Serious: No
  Sender: FDA-Public Use
  Company Number: US-BRISTOL-MYERS SQUIBB COMPANY-13000740

PATIENT
  Age: 73 Year
  Sex: Male
  Weight: 84 kg

DRUGS (6)
  1. COUMADIN [Suspect]
     Indication: ATRIAL FIBRILLATION
     Dosage: 2 MG DAILY FOR SIX DAYS AND 2.5 MG DAILY FOR ONE DAY
  2. WARFARIN SODIUM [Suspect]
  3. AMIODARONE HCL [Concomitant]
  4. CARDURA [Concomitant]
  5. COZAAR [Concomitant]
  6. HYDROCHLOROTHIAZIDE [Concomitant]

REACTIONS (2)
  - CONTUSION [None]
  - IMPAIRED HEALING [None]
